FAERS Safety Report 4625186-5 (Version None)
Quarter: 2005Q1

REPORT INFORMATION
  Report Type: 
  Country: None (occurrence: None)
  Receive Date: 20050325
  Receipt Date: 20050125
  Transmission Date: 20050727
  Serious: No
  Sender: FDA-Public Use
  Company Number: USA050189189

PATIENT
  Age: 66 Year
  Sex: Female
  Weight: 53 kg

DRUGS (1)
  1. FORTEO [Suspect]
     Indication: OSTEOPOROSIS
     Dosage: 20 UG
     Dates: start: 20041001

REACTIONS (1)
  - ACCIDENTAL OVERDOSE [None]
